FAERS Safety Report 9953317 (Version 2)
Quarter: 2014Q1

REPORT INFORMATION
  Report Type: Spontaneous
  Country: GB (occurrence: GB)
  Receive Date: 20140304
  Receipt Date: 20140331
  Transmission Date: 20141002
  Serious: Yes (Death)
  Sender: FDA-Public Use
  Company Number: GB-CELGENEUS-167-21880-14022873

PATIENT
  Age: 46 Year
  Sex: Male
  Weight: 79 kg

DRUGS (5)
  1. REVLIMID [Suspect]
     Indication: DIFFUSE LARGE B-CELL LYMPHOMA
     Dosage: 20 MILLIGRAM
     Route: 048
     Dates: start: 20131217, end: 20140210
  2. RITUXIMAB [Concomitant]
     Indication: DIFFUSE LARGE B-CELL LYMPHOMA
     Dosage: 375 MILLIGRAM/SQ. METER
     Route: 065
     Dates: start: 20131217, end: 20140210
  3. OXYCODONE [Concomitant]
     Indication: PAIN
     Dosage: 80 MILLIGRAM
     Route: 065
     Dates: start: 20130813, end: 20140211
  4. GABAPENTIN [Concomitant]
     Indication: PAIN
     Dosage: 900 MILLIGRAM
     Route: 065
     Dates: start: 20130813, end: 20140211
  5. LANSOPRAZOLE [Concomitant]
     Indication: GASTRITIS
     Dosage: 30 MILLIGRAM
     Route: 065
     Dates: start: 20130813

REACTIONS (1)
  - Diffuse large B-cell lymphoma [Fatal]
